FAERS Safety Report 9256365 (Version 2)
Quarter: 2014Q1

REPORT INFORMATION
  Report Type: Spontaneous
  Country: US (occurrence: US)
  Receive Date: 20130425
  Receipt Date: 20140115
  Transmission Date: 20141002
  Serious: No
  Sender: FDA-Public Use
  Company Number: US-009507513-1304USA011224

PATIENT
  Age: 56 Year
  Sex: Female
  Weight: 43.99 kg

DRUGS (2)
  1. STROMECTOL [Suspect]
     Indication: HELMINTHIC INFECTION
     Dosage: 3 PILLS, ONCE
     Route: 048
     Dates: start: 20130328, end: 20130328
  2. STROMECTOL [Suspect]
     Indication: INFECTION PARASITIC

REACTIONS (8)
  - Inflammation [Recovered/Resolved]
  - Insomnia [Recovered/Resolved]
  - Abdominal distension [Recovered/Resolved]
  - Helminthic infection [Not Recovered/Not Resolved]
  - Headache [Recovered/Resolved]
  - Abdominal discomfort [Recovered/Resolved]
  - Diarrhoea [Recovered/Resolved]
  - Nausea [Recovered/Resolved]
